FAERS Safety Report 8245079-4 (Version None)
Quarter: 2012Q1

REPORT INFORMATION
  Report Type: 
  Country: None (occurrence: None)
  Receive Date: 20120329
  Receipt Date: 20120322
  Transmission Date: 20120608
  Serious: Yes (Hospitalization)
  Sender: FDA-Public Use
  Company Number: US-GLAXOSMITHKLINE-A0941889A

PATIENT
  Age: 80 Year
  Sex: Male
  Weight: 72.3 kg

DRUGS (6)
  1. AVANDAMET [Suspect]
     Indication: DIABETES MELLITUS
     Route: 048
     Dates: start: 20040203, end: 20040930
  2. FLONASE [Concomitant]
  3. PRAVACHOL [Concomitant]
  4. PEPCID [Concomitant]
  5. AVANDIA [Suspect]
     Indication: DIABETES MELLITUS
     Dosage: 8MG PER DAY
     Route: 048
     Dates: start: 20040930, end: 20070806
  6. AVODART [Concomitant]

REACTIONS (6)
  - TRANSIENT ISCHAEMIC ATTACK [None]
  - OSTEOPOROSIS [None]
  - CEREBROVASCULAR ACCIDENT [None]
  - IMPLANTABLE DEFIBRILLATOR INSERTION [None]
  - OSTEOPENIA [None]
  - VENTRICULAR TACHYCARDIA [None]
